FAERS Safety Report 14923025 (Version 1)
Quarter: 2018Q2

REPORT INFORMATION
  Report Type: Spontaneous
  Country: US (occurrence: US)
  Receive Date: 20180503
  Receipt Date: 20180503
  Transmission Date: 20180711
  Serious: Yes (Other)
  Sender: FDA-Public Use
  Company Number: None

PATIENT
  Age: 50 Year
  Sex: Female
  Weight: 58.5 kg

DRUGS (8)
  1. TRESIBA [Concomitant]
     Active Substance: INSULIN DEGLUDEC
  2. MAGNESIUM [Concomitant]
     Active Substance: MAGNESIUM
  3. POTASSIUM [Concomitant]
     Active Substance: POTASSIUM
  4. POLIDOCANOL [Suspect]
     Active Substance: POLIDOCANOL
     Indication: SCLEROTHERAPY
     Dates: start: 20180417
  5. HUMALOG [Concomitant]
     Active Substance: INSULIN LISPRO
  6. LEVOTHYROXINE. [Concomitant]
     Active Substance: LEVOTHYROXINE
  7. MULTI-VITAMIN [Concomitant]
     Active Substance: .ALPHA.-TOCOPHEROL ACETATE, DL-\ASCORBIC ACID\CYANOCOBALAMIN\FLUORIDE ION\FOLIC ACID\NIACIN\PYRIDOXINE\RIBOFLAVIN\THIAMINE\VITAMIN A\VITAMIN D
  8. VITAMIN B12 [Concomitant]
     Active Substance: CYANOCOBALAMIN

REACTIONS (4)
  - Swelling [None]
  - Unevaluable event [None]
  - Injection site pain [None]
  - Injection site discolouration [None]

NARRATIVE: CASE EVENT DATE: 20180417
